FAERS Safety Report 13664376 (Version 1)
Quarter: 2017Q2

REPORT INFORMATION
  Report Type: Spontaneous
  Country: US (occurrence: US)
  Receive Date: 20170619
  Receipt Date: 20170619
  Transmission Date: 20170830
  Serious: No
  Sender: FDA-Public Use
  Company Number: US-ASTRAZENECA-2017SE60668

PATIENT
  Age: 922 Month
  Sex: Male
  Weight: 63.5 kg

DRUGS (3)
  1. SYMBICORT [Suspect]
     Active Substance: BUDESONIDE\FORMOTEROL FUMARATE DIHYDRATE
     Indication: ASTHMA
     Dosage: DOSE: 160 MCG / 4.5 MCG, 2 PUFFS, FREQUENCY: TWO TIMES A DAY
     Route: 055
  2. LISINOPRIL. [Suspect]
     Active Substance: LISINOPRIL
     Indication: BLOOD PRESSURE MEASUREMENT
     Route: 048
  3. SYMBICORT [Suspect]
     Active Substance: BUDESONIDE\FORMOTEROL FUMARATE DIHYDRATE
     Indication: ASTHMA
     Dosage: DOSE: 160 MCG / 4.5 MCG, 1 PUFFS, FREQUENCY: TWO TIMES A DAY
     Route: 055
     Dates: start: 20170606

REACTIONS (10)
  - Fatigue [Recovering/Resolving]
  - Dizziness [Unknown]
  - Viral upper respiratory tract infection [Recovering/Resolving]
  - Somnolence [Recovering/Resolving]
  - Memory impairment [Unknown]
  - Gait disturbance [Unknown]
  - Balance disorder [Unknown]
  - Hypertension [Recovered/Resolved]
  - Nasal discharge discolouration [Unknown]
  - Off label use [Unknown]

NARRATIVE: CASE EVENT DATE: 201705
